FAERS Safety Report 9806456 (Version 1)
Quarter: 2014Q1

REPORT INFORMATION
  Report Type: Spontaneous
  Country: US (occurrence: US)
  Receive Date: 20140109
  Receipt Date: 20140109
  Transmission Date: 20141002
  Serious: Yes (Other)
  Sender: FDA-Public Use
  Company Number: US-TEVA-455009USA

PATIENT
  Age: 59 Year
  Sex: Male

DRUGS (5)
  1. CLOTRIMAZOLE [Suspect]
     Indication: OTITIS EXTERNA FUNGAL
     Dosage: 1% SOLUTION; 4 DROPS 3 TIMES DAILY
     Route: 061
  2. TETRACAINE [Suspect]
     Dosage: 1% TETRACAINE IN PROPYLENE GLYCOL; 2 DROPS
     Route: 050
  3. USTEKINUMAB [Concomitant]
     Indication: PSORIASIS
     Route: 065
  4. PROPYLENE GLYCOL [Concomitant]
     Dosage: 1% TETRACAINE IN PROPYLENE GLYCOL; 2 DROPS
     Route: 050
  5. IBUPROFEN [Concomitant]
     Indication: EAR PAIN
     Route: 048

REACTIONS (3)
  - Ear pain [Recovered/Resolved]
  - Dysgeusia [Unknown]
  - Discomfort [Recovering/Resolving]
